FAERS Safety Report 6676198-1 (Version None)
Quarter: 2010Q2

REPORT INFORMATION
  Report Type: 
  Country: None (occurrence: None)
  Receive Date: 20100412
  Receipt Date: 20100331
  Transmission Date: 20101027
  Serious: Yes (Other)
  Sender: FDA-Public Use
  Company Number: US-JNJFOC-20100109641

PATIENT
  Age: 58 Year
  Sex: Female
  Weight: 67.13 kg

DRUGS (5)
  1. EXTRA STRENGTH TYLENOL [Suspect]
     Route: 048
  2. EXTRA STRENGTH TYLENOL [Suspect]
     Indication: DRUG USE FOR UNKNOWN INDICATION
     Route: 048
  3. EXTRA STRENGTH TYLENOL PM RAPID RELEASE [Suspect]
     Indication: SLEEP DISORDER THERAPY
     Route: 048
  4. ASPIRIN [Suspect]
     Indication: CARDIAC DISORDER
     Route: 048
  5. BENADRYL [Suspect]
     Indication: NASAL CONGESTION
     Route: 048

REACTIONS (5)
  - MIGRAINE [None]
  - PRODUCT QUALITY ISSUE [None]
  - RADICULAR PAIN [None]
  - VOMITING [None]
  - WEIGHT DECREASED [None]
